FAERS Safety Report 8585189-5 (Version None)
Quarter: 2012Q3

REPORT INFORMATION
  Report Type: 
  Country: None (occurrence: None)
  Receive Date: 20120810
  Receipt Date: 20120807
  Transmission Date: 20120928
  Serious: Yes (Death, Other)
  Sender: FDA-Public Use
  Company Number: PHHY2011JP103837

PATIENT
  Sex: Female
  Weight: 76 kg

DRUGS (9)
  1. FEMARA [Suspect]
     Indication: BREAST CANCER
     Dosage: 2.5 MG, DAILY
     Route: 048
     Dates: start: 20101122, end: 20110425
  2. MEDROXYPROGESTERONE ACETATE [Suspect]
     Indication: BREAST CANCER
     Dosage: 1200 MG, DAILY
     Route: 048
     Dates: start: 20080602, end: 20090727
  3. AREDIA [Suspect]
     Indication: METASTASES TO BONE
     Dosage: 90 MG, DAILY
     Route: 041
     Dates: start: 20060201, end: 20060501
  4. CAPECITABINE [Concomitant]
  5. PACLITAXEL [Concomitant]
  6. ZOMETA [Suspect]
     Indication: METASTASES TO BONE
     Dosage: 4 MG, DAILY
     Route: 041
     Dates: start: 20060501, end: 20080501
  7. FARESTON [Suspect]
     Indication: BREAST CANCER
     Dosage: 40 MG, DAILY
     Route: 048
     Dates: start: 20090727, end: 20101122
  8. MEDROXYPROGESTERONE ACETATE [Concomitant]
  9. TAMOXIFEN CITRATE [Suspect]
     Indication: BREAST CANCER
     Dosage: 20 MG, DAILY
     Route: 048
     Dates: start: 20110425, end: 20110913

REACTIONS (21)
  - PERIODONTAL INFECTION [None]
  - GINGIVAL INFECTION [None]
  - GINGIVITIS [None]
  - METASTASES TO BONE [None]
  - MEDIASTINAL SHIFT [None]
  - NEOPLASM MALIGNANT [None]
  - PRIMARY SEQUESTRUM [None]
  - METASTASES TO CHEST WALL [None]
  - BONE NEOPLASM [None]
  - PNEUMONIA STAPHYLOCOCCAL [None]
  - BONE SWELLING [None]
  - RESPIRATORY DISORDER [None]
  - NEOPLASM PROGRESSION [None]
  - BONE PAIN [None]
  - GENERAL PHYSICAL HEALTH DETERIORATION [None]
  - BONE FISTULA [None]
  - PLEURAL EFFUSION [None]
  - OSTEONECROSIS OF JAW [None]
  - BONE LESION [None]
  - EXPOSED BONE IN JAW [None]
  - OSTEOMYELITIS [None]
